FAERS Safety Report 18017606 (Version 5)
Quarter: 2020Q3

REPORT INFORMATION
  Report Type: Spontaneous
  Country: CH (occurrence: CH)
  Receive Date: 20200714
  Receipt Date: 20200914
  Transmission Date: 20201103
  Serious: Yes (Life-Threatening, Hospitalization, Other)
  Sender: FDA-Public Use
  Company Number: CH-BRISTOL-MYERS SQUIBB COMPANY-BMS-2020-054775

PATIENT
  Age: 56 Year
  Sex: Male

DRUGS (2)
  1. YERVOY [Suspect]
     Active Substance: IPILIMUMAB
     Indication: MALIGNANT MELANOMA
     Dosage: 1ST TO 4TH INFUSION
     Route: 042
     Dates: start: 20190114, end: 20190918
  2. OPDIVO [Suspect]
     Active Substance: NIVOLUMAB
     Indication: MALIGNANT MELANOMA
     Dosage: 1ST TO 4TH INFUSION
     Route: 042
     Dates: start: 20190114, end: 20190918

REACTIONS (12)
  - Axonal neuropathy [Unknown]
  - Atelectasis [Unknown]
  - Colitis [Unknown]
  - Anaphylactic reaction [Unknown]
  - Calculus urinary [Unknown]
  - Normocytic anaemia [Unknown]
  - Dyshidrotic eczema [Unknown]
  - Rash [Unknown]
  - Vitamin D deficiency [Unknown]
  - Malignant neoplasm progression [Unknown]
  - Coronary artery disease [Unknown]
  - Acute kidney injury [Unknown]

NARRATIVE: CASE EVENT DATE: 20191011
